FAERS Safety Report 11048749 (Version 1)
Quarter: 2015Q2

REPORT INFORMATION
  Report Type: Spontaneous
  Country: GB (occurrence: GB)
  Receive Date: 20150420
  Receipt Date: 20150420
  Transmission Date: 20150821
  Serious: Yes (Death, Other)
  Sender: FDA-Public Use
  Company Number: GB-CIPLA LTD.-2015GB02990

PATIENT

DRUGS (8)
  1. SERTRALINE [Suspect]
     Active Substance: SERTRALINE HYDROCHLORIDE
     Indication: DEPRESSION
     Dosage: 200 MG, UNK
     Route: 048
  2. BACLOFEN. [Concomitant]
     Active Substance: BACLOFEN
     Dosage: 10 MG, TID
     Route: 065
  3. CHLORAMPHENICOL [Concomitant]
     Active Substance: CHLORAMPHENICOL
     Dosage: 10 ML, UNK
     Route: 061
  4. QUETIAPINE [Suspect]
     Active Substance: QUETIAPINE
     Indication: DEPRESSION
     Dosage: 300 MG, UNK
     Route: 048
  5. DIAZEPAM. [Concomitant]
     Active Substance: DIAZEPAM
     Dosage: 5 MG, BID
     Route: 065
  6. PREGABALIN. [Concomitant]
     Active Substance: PREGABALIN
     Dosage: 150 MG, BID
     Route: 065
  7. MORPHINE SULPHATE [Concomitant]
     Active Substance: MORPHINE SULFATE
     Dosage: 10MG/5 ML
     Route: 065
  8. DOXYCYCLINE. [Concomitant]
     Active Substance: DOXYCYCLINE
     Dosage: 100 MG, QD
     Route: 065

REACTIONS (6)
  - Pulmonary infarction [Not Recovered/Not Resolved]
  - Pulmonary embolism [Fatal]
  - Phlebitis [Not Recovered/Not Resolved]
  - Right ventricular hypertrophy [Not Recovered/Not Resolved]
  - Deep vein thrombosis [Not Recovered/Not Resolved]
  - Circulatory collapse [Not Recovered/Not Resolved]
